FAERS Safety Report 10485564 (Version 1)
Quarter: 2014Q3

REPORT INFORMATION
  Report Type: Spontaneous
  Country: US (occurrence: US)
  Receive Date: 20140930
  Receipt Date: 20140930
  Transmission Date: 20150326
  Serious: Yes (Other)
  Sender: FDA-Public Use
  Company Number: US-BRISTOL-MYERS SQUIBB COMPANY-21436852

PATIENT
  Age: 83 Year
  Sex: Female
  Weight: 55.78 kg

DRUGS (5)
  1. DILTIAZEM HCL [Concomitant]
     Active Substance: DILTIAZEM HYDROCHLORIDE
  2. FUROSEMIDE. [Concomitant]
     Active Substance: FUROSEMIDE
  3. SPIRIVA [Concomitant]
     Active Substance: TIOTROPIUM BROMIDE MONOHYDRATE
  4. ELIQUIS [Suspect]
     Active Substance: APIXABAN
     Dosage: INTERRUPTED:10-SEP-14)?RESUMED:16-SEP-14)
     Dates: start: 201408
  5. PROPRANOLOL [Concomitant]
     Active Substance: PROPRANOLOL\PROPRANOLOL HYDROCHLORIDE

REACTIONS (4)
  - Sinus polyp [Unknown]
  - Weight decreased [Unknown]
  - Nasal polyps [Unknown]
  - Decreased appetite [Unknown]
